FAERS Safety Report 4014227 (Version 4)
Quarter: 2020Q1

REPORT INFORMATION
  Report Type: Report from Study
  Country: DE (occurrence: DE)
  Receive Date: 20031020
  Receipt Date: 20200225
  Transmission Date: 20200409
  Serious: Yes (Other)
  Sender: FDA-Public Use
  Company Number: DE-ROCHE-348790

PATIENT
  Age: 45 Year
  Sex: Male
  Weight: 89.5 kg

DRUGS (5)
  1. PARACETAMOL [Concomitant]
     Active Substance: ACETAMINOPHEN
     Indication: PYREXIA
     Route: 065
     Dates: start: 20030314
  2. CITALOPRAM [Concomitant]
     Active Substance: CITALOPRAM HYDROBROMIDE
     Indication: DEPRESSION
     Dosage: ADDITIONAL THERAPY DATES: 27 JUN 2003 - 21 AUG 2003 WITH DOSE OF 40MG.
     Route: 065
     Dates: start: 20030502, end: 20030627
  3. LAIF [Concomitant]
     Indication: DEPRESSION
     Route: 065
     Dates: start: 20030307
  4. PEGINTERFERON ALFA-2A. [Suspect]
     Active Substance: PEGINTERFERON ALFA-2A
     Indication: HEPATITIS C
     Route: 058
     Dates: start: 20030307, end: 20030821
  5. REBETOL [Concomitant]
     Active Substance: RIBAVIRIN
     Indication: HEPATITIS C
     Dosage: ADDITIONAL THERAPY DATES: 25 APR 2003-21 AUG 2003 WITH DOSE OF 600 MG.
     Route: 048
     Dates: start: 20030307, end: 20030424

REACTIONS (4)
  - Haemoglobin decreased [Recovered/Resolved]
  - Post-traumatic stress disorder [Unknown]
  - Adjustment disorder with depressed mood [Recovering/Resolving]
  - Dyspnoea exertional [Unknown]

NARRATIVE: CASE EVENT DATE: 20030422
